FAERS Safety Report 9482395 (Version 1)
Quarter: 2013Q3

REPORT INFORMATION
  Report Type: Spontaneous
  Country: AU (occurrence: AU)
  Receive Date: 20130828
  Receipt Date: 20130828
  Transmission Date: 20140515
  Serious: Yes (Other)
  Sender: FDA-Public Use
  Company Number: AU-PFIZER INC-2013248344

PATIENT
  Sex: Male

DRUGS (1)
  1. PRISTIQ [Suspect]
     Indication: DEPRESSION
     Dosage: 50 MG, UNK

REACTIONS (4)
  - Convulsion [Unknown]
  - Psychotic behaviour [Unknown]
  - Muscle twitching [Unknown]
  - Abnormal behaviour [Unknown]
